FAERS Safety Report 5341490-X (Version None)
Quarter: 2007Q2

REPORT INFORMATION
  Report Type: 
  Country: None (occurrence: None)
  Receive Date: 20070601
  Receipt Date: 20070524
  Transmission Date: 20071010
  Serious: Yes (Hospitalization, Other)
  Sender: FDA-Public Use
  Company Number: PHEH2007US07951

PATIENT
  Age: 41 Year
  Sex: Male
  Weight: 77.097 kg

DRUGS (1)
  1. EXJADE [Suspect]
     Indication: SICKLE CELL ANAEMIA
     Dosage: 30 MG/KG, QD
     Route: 048
     Dates: start: 20060301, end: 20070524

REACTIONS (3)
  - OSTEOMYELITIS [None]
  - PAIN [None]
  - SKIN ULCER [None]
